APPROVED DRUG PRODUCT: ALPRAZOLAM
Active Ingredient: ALPRAZOLAM
Strength: 0.5MG
Dosage Form/Route: TABLET, ORALLY DISINTEGRATING;ORAL
Application: A078088 | Product #002 | TE Code: AB
Applicant: PH HEALTH LTD
Approved: Jan 9, 2009 | RLD: No | RS: No | Type: RX